FAERS Safety Report 24853347 (Version 1)
Quarter: 2025Q1

REPORT INFORMATION
  Report Type: Spontaneous
  Country: JP (occurrence: JP)
  Receive Date: 20250117
  Receipt Date: 20250117
  Transmission Date: 20250408
  Serious: Yes (Life-Threatening, Other)
  Sender: ALKEM
  Company Number: JP-ALKEM LABORATORIES LIMITED-JP-ALKEM-2025-00132

PATIENT
  Age: 48 Year
  Sex: Male
  Weight: 98 kg

DRUGS (13)
  1. LIDOCAINE [Suspect]
     Active Substance: LIDOCAINE
     Indication: Local anaesthesia
     Route: 061
  2. LIDOCAINE [Suspect]
     Active Substance: LIDOCAINE
     Route: 065
  3. EPINEPHRINE [Concomitant]
     Active Substance: EPINEPHRINE
     Indication: Local anaesthesia
     Route: 065
  4. FENTANYL [Concomitant]
     Active Substance: FENTANYL
     Indication: General anaesthesia
     Route: 065
  5. FENTANYL [Concomitant]
     Active Substance: FENTANYL
     Route: 065
  6. REMIFENTANIL [Concomitant]
     Active Substance: REMIFENTANIL
     Indication: General anaesthesia
     Route: 065
  7. REMIFENTANIL [Concomitant]
     Active Substance: REMIFENTANIL
     Route: 065
  8. REMIFENTANIL [Concomitant]
     Active Substance: REMIFENTANIL
     Route: 065
  9. REMIMAZOLAM [Concomitant]
     Active Substance: REMIMAZOLAM
     Indication: Neuromuscular blockade
     Route: 065
  10. REMIMAZOLAM [Concomitant]
     Active Substance: REMIMAZOLAM
     Indication: General anaesthesia
     Route: 065
  11. REMIMAZOLAM [Concomitant]
     Active Substance: REMIMAZOLAM
     Route: 065
  12. ROCURONIUM [Concomitant]
     Active Substance: ROCURONIUM BROMIDE
     Indication: Neuromuscular blockade
     Route: 065
  13. ROCURONIUM [Concomitant]
     Active Substance: ROCURONIUM BROMIDE
     Indication: General anaesthesia
     Route: 065

REACTIONS (2)
  - Local anaesthetic systemic toxicity [Recovered/Resolved]
  - Electrocardiogram QT prolonged [Recovered/Resolved]
